FAERS Safety Report 22117644 (Version 1)
Quarter: 2023Q1

REPORT INFORMATION
  Report Type: Spontaneous
  Country: RU (occurrence: RU)
  Receive Date: 20230321
  Receipt Date: 20230321
  Transmission Date: 20230418
  Serious: Yes (Hospitalization, Other)
  Sender: FDA-Public Use
  Company Number: RU-IPCA LABORATORIES LIMITED-IPC-2023-RU-000440

PATIENT

DRUGS (3)
  1. WARFARIN [Suspect]
     Active Substance: WARFARIN
     Indication: Transcatheter aortic valve implantation
     Dosage: 2.5 MILLIGRAM, QD
     Route: 065
  2. WARFARIN [Suspect]
     Active Substance: WARFARIN
     Dosage: 1.25 MILLIGRAM, QD
     Route: 065
     Dates: start: 202201
  3. LEVOTHYROXINE [Concomitant]
     Active Substance: LEVOTHYROXINE
     Indication: Autoimmune thyroiditis
     Dosage: 50 MICROGRAM
     Route: 065

REACTIONS (5)
  - Gastrointestinal haemorrhage [Recovering/Resolving]
  - Drug hypersensitivity [Unknown]
  - Hypocoagulable state [Recovering/Resolving]
  - Iron deficiency anaemia [Recovering/Resolving]
  - International normalised ratio increased [Recovering/Resolving]
